FAERS Safety Report 4425020-2 (Version None)
Quarter: 2004Q3

REPORT INFORMATION
  Report Type: 
  Country: None (occurrence: None)
  Receive Date: 20040809
  Receipt Date: 20040805
  Transmission Date: 20050211
  Serious: Yes (Disabling)
  Sender: FDA-Public Use
  Company Number: HQWYE791803MAR03

PATIENT
  Age: 26 Year
  Sex: Male

DRUGS (3)
  1. DIMETAPP [Suspect]
     Dosage: ORAL
     Route: 048
  2. DRISTAN [Suspect]
     Dosage: ORAL
     Route: 048
  3. ROBITUSSIN CG (GUAIFENESIN/DEXTROMETHORPHAN/PHENYLPROPANOLAMINE, SYRUP [Suspect]
     Dosage: ORAL
     Route: 048

REACTIONS (3)
  - ANEURYSM [None]
  - BRAIN NEOPLASM [None]
  - CEREBROVASCULAR ACCIDENT [None]
